FAERS Safety Report 17430643 (Version 1)
Quarter: 2020Q1

REPORT INFORMATION
  Report Type: Spontaneous
  Country: US (occurrence: US)
  Receive Date: 20200216
  Receipt Date: 20200216
  Transmission Date: 20200409
  Serious: Yes (Disabling)
  Sender: FDA-Public Use
  Company Number: None

PATIENT
  Age: 58 Year
  Sex: Female
  Weight: 96.3 kg

DRUGS (13)
  1. XARELTO [Suspect]
     Active Substance: RIVAROXABAN
     Indication: ATRIAL FLUTTER
     Dosage: ?          QUANTITY:1 TABLET(S);?
     Route: 048
  2. BIOTIN [Concomitant]
     Active Substance: BIOTIN
  3. VITAMIN D [Concomitant]
     Active Substance: VITAMIN D NOS
  4. SYNTHROID .025 [Concomitant]
  5. MULTIVITAMIN [Concomitant]
     Active Substance: VITAMINS
  6. ASPIRIN 81MG [Concomitant]
     Active Substance: ASPIRIN
  7. VITAMIN C [Concomitant]
     Active Substance: ASCORBIC ACID
  8. LIPITOR [Concomitant]
     Active Substance: ATORVASTATIN CALCIUM
  9. CALCIUM [Concomitant]
     Active Substance: CALCIUM
  10. ATENOLOL 25MG [Concomitant]
     Active Substance: ATENOLOL
  11. OMEPRAZOLE 40MG [Concomitant]
     Active Substance: OMEPRAZOLE
  12. VITAMIN B COMPLEX [Concomitant]
     Active Substance: CYANOCOBALAMIN\DEXPANTHENOL\NIACINAMIDE\PYRIDOXINE HYDROCHLORIDE\RIBOFLAVIN 5^-PHOSPHATE SODIUM\THIAMINE HYDROCHLORIDE\VITAMIN B COMPLEX
  13. K2 [Concomitant]
     Active Substance: JWH-018

REACTIONS (11)
  - Skin burning sensation [None]
  - Hypoaesthesia [None]
  - Sensitive skin [None]
  - Screaming [None]
  - Amnesia [None]
  - Pain [None]
  - Drug hypersensitivity [None]
  - Middle insomnia [None]
  - Disturbance in attention [None]
  - Pain in extremity [None]
  - Muscle spasms [None]

NARRATIVE: CASE EVENT DATE: 20180415
